FAERS Safety Report 7755469-1 (Version None)
Quarter: 2011Q3

REPORT INFORMATION
  Report Type: 
  Country: None (occurrence: None)
  Receive Date: 20110914
  Receipt Date: 20110819
  Transmission Date: 20111222
  Serious: Yes (Hospitalization, Other)
  Sender: FDA-Public Use
  Company Number: 2011AP001815

PATIENT
  Age: 49 Year
  Sex: Male

DRUGS (1)
  1. ZOLPIDEM TARTRATE [Suspect]
     Indication: INSOMNIA

REACTIONS (12)
  - CEREBRAL HAEMORRHAGE [None]
  - SUBDURAL HAEMATOMA [None]
  - INTENTIONAL SELF-INJURY [None]
  - SOMNAMBULISM [None]
  - HEAD INJURY [None]
  - DELIRIUM [None]
  - GUN SHOT WOUND [None]
  - ALCOHOL USE [None]
  - PNEUMONIA [None]
  - PARASOMNIA [None]
  - BLINDNESS [None]
  - SUBARACHNOID HAEMORRHAGE [None]
